FAERS Safety Report 16936959 (Version 10)
Quarter: 2023Q4

REPORT INFORMATION
  Report Type: Spontaneous
  Country: US (occurrence: US)
  Receive Date: 20191018
  Receipt Date: 20231221
  Transmission Date: 20240110
  Serious: Yes (Hospitalization, Other)
  Sender: FDA-Public Use
  Company Number: US-PFIZER INC-2019448304

PATIENT
  Age: 49 Year
  Sex: Female
  Weight: 96.599 kg

DRUGS (6)
  1. XELJANZ [Suspect]
     Active Substance: TOFACITINIB CITRATE
     Indication: Rheumatoid arthritis
     Dosage: 5 MG, 2X/DAY
     Route: 048
     Dates: start: 201907, end: 20191007
  2. XELJANZ [Suspect]
     Active Substance: TOFACITINIB CITRATE
     Indication: Arthritis
     Dosage: 5 MG, 2X/DAY
     Route: 048
     Dates: start: 20191019
  3. XELJANZ [Suspect]
     Active Substance: TOFACITINIB CITRATE
     Dosage: 5 MG
     Route: 048
     Dates: start: 20220927
  4. VIT D /CALCIUM [Concomitant]
     Dosage: UNK
  5. CITALOPRAM [Concomitant]
     Active Substance: CITALOPRAM HYDROBROMIDE
     Dosage: UNK
  6. LYRICA [Concomitant]
     Active Substance: PREGABALIN
     Dosage: UNK

REACTIONS (10)
  - Fall [Recovering/Resolving]
  - Hip fracture [Recovering/Resolving]
  - Joint dislocation [Unknown]
  - Urinary tract infection [Unknown]
  - Hip surgery [Recovering/Resolving]
  - Product dose omission in error [Unknown]
  - Hair growth abnormal [Unknown]
  - Therapeutic response unexpected [Unknown]
  - Headache [Unknown]
  - Pain [Unknown]

NARRATIVE: CASE EVENT DATE: 20190701
